FAERS Safety Report 11575748 (Version 1)
Quarter: 2015Q3

REPORT INFORMATION
  Report Type: Spontaneous
  Country: GB (occurrence: GB)
  Receive Date: 20150930
  Receipt Date: 20150930
  Transmission Date: 20151125
  Serious: Yes (Other)
  Sender: FDA-Public Use
  Company Number: GB-TEVA-595902ACC

PATIENT
  Age: 28 Year
  Sex: Female
  Weight: 51 kg

DRUGS (9)
  1. CIPROFLOXACIN. [Suspect]
     Active Substance: CIPROFLOXACIN
     Indication: PROPHYLAXIS URINARY TRACT INFECTION
     Dosage: 1000 MILLIGRAM DAILY;
     Route: 048
     Dates: start: 20150901, end: 20150903
  2. XARELTO [Interacting]
     Active Substance: RIVAROXABAN
     Indication: PULMONARY EMBOLISM
     Dosage: 15 MILLIGRAM DAILY;
  3. LAMOTRIGINE. [Concomitant]
     Active Substance: LAMOTRIGINE
  4. PREGABALIN. [Concomitant]
     Active Substance: PREGABALIN
  5. CABERGOLINE. [Concomitant]
     Active Substance: CABERGOLINE
  6. PHENELZINE [Concomitant]
     Active Substance: PHENELZINE
  7. CLONAZEPAM. [Concomitant]
     Active Substance: CLONAZEPAM
  8. TOPAMAX [Concomitant]
     Active Substance: TOPIRAMATE
  9. OMEPRAZOLE. [Concomitant]
     Active Substance: OMEPRAZOLE

REACTIONS (2)
  - Drug interaction [Unknown]
  - Haematuria [Recovered/Resolved]

NARRATIVE: CASE EVENT DATE: 20150902
